FAERS Safety Report 7361918-3 (Version None)
Quarter: 2011Q1

REPORT INFORMATION
  Report Type: 
  Country: None (occurrence: None)
  Receive Date: 20110318
  Receipt Date: 20110310
  Transmission Date: 20110831
  Serious: Yes (Death, Life-Threatening, Hospitalization)
  Sender: FDA-Public Use
  Company Number: JP-CEPHALON-2011001096

PATIENT
  Sex: Female
  Weight: 41 kg

DRUGS (2)
  1. BENDAMUSTINE HCL [Suspect]
     Indication: B-CELL SMALL LYMPHOCYTIC LYMPHOMA
     Route: 042
     Dates: start: 20110128, end: 20110129
  2. ITRACONAZOLE [Concomitant]
     Dates: start: 20110108, end: 20110210

REACTIONS (6)
  - B-CELL SMALL LYMPHOCYTIC LYMPHOMA [None]
  - HYPERBILIRUBINAEMIA [None]
  - CYTOMEGALOVIRUS INFECTION [None]
  - CYSTITIS HAEMORRHAGIC [None]
  - PYREXIA [None]
  - SEPSIS [None]
